FAERS Safety Report 7834099-7 (Version None)
Quarter: 2011Q4

REPORT INFORMATION
  Report Type: 
  Country: None (occurrence: None)
  Receive Date: 20111024
  Receipt Date: 20111024
  Transmission Date: 20120403
  Serious: Yes (Other)
  Sender: FDA-Public Use
  Company Number: None

PATIENT
  Age: 36 Year
  Sex: Male
  Weight: 131.54 kg

DRUGS (2)
  1. DILTIAZEM [Suspect]
     Indication: HYPERTENSION
     Dates: start: 20090628, end: 20111023
  2. DILTIAZEM [Suspect]
     Indication: HYPERTROPHIC CARDIOMYOPATHY
     Dates: start: 20090628, end: 20111023

REACTIONS (3)
  - DIPLEGIA [None]
  - AMNESIA [None]
  - ERECTILE DYSFUNCTION [None]
